FAERS Safety Report 6959513-0 (Version None)
Quarter: 2010Q3

REPORT INFORMATION
  Report Type: 
  Country: None (occurrence: None)
  Receive Date: 20100827
  Receipt Date: 20100816
  Transmission Date: 20110219
  Serious: Yes (Death, Hospitalization)
  Sender: FDA-Public Use
  Company Number: 2010AC000230

PATIENT
  Age: 89 Year
  Sex: Female

DRUGS (8)
  1. DIGOXIN [Suspect]
     Dosage: .125 MG; QD; PO
     Route: 048
     Dates: start: 20061031
  2. METOPROLOL TARTRATE [Concomitant]
  3. COUMADIN [Concomitant]
  4. PLAVIX [Concomitant]
  5. ASPIRIN [Concomitant]
  6. LASIX [Concomitant]
  7. POTASSIUM [Concomitant]
  8. NAMENDA [Concomitant]

REACTIONS (22)
  - ABNORMAL BEHAVIOUR [None]
  - ACUTE MYOCARDIAL INFARCTION [None]
  - ANHEDONIA [None]
  - ANXIETY [None]
  - APNOEA [None]
  - ATRIAL FIBRILLATION [None]
  - BLOOD PRESSURE DECREASED [None]
  - CONDITION AGGRAVATED [None]
  - CONFUSIONAL STATE [None]
  - CORONARY ARTERY DISEASE [None]
  - DECREASED APPETITE [None]
  - DIARRHOEA [None]
  - ECONOMIC PROBLEM [None]
  - ELECTROCARDIOGRAM ABNORMAL [None]
  - FALL [None]
  - FLUID RETENTION [None]
  - INJURY [None]
  - LOSS OF CONSCIOUSNESS [None]
  - MENTAL STATUS CHANGES [None]
  - OEDEMA PERIPHERAL [None]
  - PAIN [None]
  - PERIPHERAL VASCULAR DISORDER [None]
